FAERS Safety Report 18586668 (Version 6)
Quarter: 2021Q1

REPORT INFORMATION
  Report Type: Spontaneous
  Country: AT (occurrence: AT)
  Receive Date: 20201207
  Receipt Date: 20210129
  Transmission Date: 20210419
  Serious: Yes (Other)
  Sender: FDA-Public Use
  Company Number: AT-TEVA-2020-AT-1856996

PATIENT
  Age: 77 Year
  Sex: Male

DRUGS (8)
  1. PASPERTIN [METOCLOPRAMIDE HYDROCHLORIDE] [Concomitant]
     Active Substance: METOCLOPRAMIDE HYDROCHLORIDE
     Route: 042
  2. DUTAGLANDIN COMP. 0,5 MG/0,4 MG [Suspect]
     Active Substance: DUTASTERIDE\TAMSULOSIN HYDROCHLORIDE
     Indication: BENIGN PROSTATIC HYPERPLASIA
     Dosage: 1 DOSAGE FORMS DAILY; 1 DF 1/1 DAY(S) ( DAILY ONE TABLET IN THE MORNING, 1?0?0)
     Route: 065
     Dates: start: 202004
  3. CAPECITABINE ACC FTBL 500 MG [Suspect]
     Active Substance: CAPECITABINE
     Dosage: 3000 MILLIGRAM DAILY; 825 MG/M2 KOF, RADIOCHEMOTHERAPY WITH CAPECITABINE 2X PER DAY ONRADIOTHERAPY D
     Route: 048
     Dates: start: 20201111, end: 20201113
  4. MITOMYCIN C [Suspect]
     Active Substance: MITOMYCIN
     Indication: CHEMOTHERAPY
     Dosage: 10 MG/M2 KOF, RADIOCHEMOTHERAPY WITH MITOMYCIN C IN 2 CYCLES; EQUATES TO 18 MG IV
     Route: 042
     Dates: start: 20201007, end: 20201113
  5. BANEOCIN SLB [Concomitant]
     Active Substance: BACITRACIN ZINC\NEOMYCIN SULFATE
     Dosage: 2X PER DAY AT THE GLANS AREA FOR 10 DAYS
  6. CAPECITABINE ACC FTBL 500 MG [Suspect]
     Active Substance: CAPECITABINE
     Indication: CHEMOTHERAPY
     Dosage: 3000 MILLIGRAM DAILY; 825 MG/M2 KOF, RADIOCHEMOTHERAPY WITH CAPECITABINE 2X PER DAY ONRADIOTHERAPY D
     Route: 048
     Dates: start: 20201007, end: 20201030
  7. BETAISIDONA LSG STAND. [Concomitant]
     Active Substance: POVIDONE-IODINE
     Dosage: 2X PER DAY PENILE BATH FOR 10 DAYS
  8. XEFO FTBL 8 MG [Concomitant]
     Active Substance: LORNOXICAM
     Indication: PAIN
     Dosage: 1 DOSAGE FORMS DAILY; 1 DF= 1 TABLET PER DAY

REACTIONS (7)
  - Therapeutic product effect incomplete [Recovering/Resolving]
  - Leukopenia [Recovered/Resolved]
  - Defaecation urgency [Recovered/Resolved]
  - Dyschezia [Recovered/Resolved]
  - Micturition urgency [Recovering/Resolving]
  - Thrombocytopenia [Recovered/Resolved]
  - Nocturia [Recovering/Resolving]

NARRATIVE: CASE EVENT DATE: 2020
